FAERS Safety Report 5311144-4 (Version None)
Quarter: 2007Q2

REPORT INFORMATION
  Report Type: 
  Country: None (occurrence: None)
  Receive Date: 20070430
  Receipt Date: 20070419
  Transmission Date: 20071010
  Serious: Yes (Other)
  Sender: FDA-Public Use
  Company Number: US-ELI_LILLY_AND_COMPANY-US200704004362

PATIENT
  Age: 51 Year
  Sex: Male

DRUGS (8)
  1. ZYPREXA [Suspect]
     Indication: BIPOLAR DISORDER
     Dosage: 30 MG, UNKNOWN
     Route: 048
     Dates: start: 20060101
  2. PROTONIX [Concomitant]
     Dosage: UNK, UNKNOWN
  3. LASIX [Concomitant]
     Dosage: UNK, UNKNOWN
  4. THIAMINE HCL [Concomitant]
     Dosage: UNK, UNKNOWN
  5. RESTORIL [Concomitant]
     Dosage: UNK, UNKNOWN
  6. COLACE [Concomitant]
     Dosage: UNK, UNKNOWN
  7. LORA TAB [Concomitant]
     Dosage: 7.5 MG, UNKNOWN
  8. REGLAN [Concomitant]
     Dosage: 10 MG, UNKNOWN

REACTIONS (4)
  - CONFUSIONAL STATE [None]
  - INSOMNIA [None]
  - LUNG NEOPLASM MALIGNANT [None]
  - PRESCRIBED OVERDOSE [None]
